FAERS Safety Report 4283917-0 (Version None)
Quarter: 2004Q1

REPORT INFORMATION
  Report Type: 
  Country: None (occurrence: None)
  Receive Date: 20040115
  Receipt Date: 20030326
  Transmission Date: 20041129
  Serious: Yes (Death)
  Sender: FDA-Public Use
  Company Number: NSADSS2003014618

PATIENT
  Age: 53 Year
  Sex: Female

DRUGS (5)
  1. DOXIL [Suspect]
     Indication: OVARIAN CANCER
     Dosage: 100 MG, 1 IN 2 WEEK, INTRAVENOUS DRIP
     Route: 041
     Dates: start: 20020815, end: 20020815
  2. ABZENET ( ) DILASETRON MESILATE [Concomitant]
  3. BENADRYL [Concomitant]
  4. DECADRON [Concomitant]
  5. PEPCID [Concomitant]

REACTIONS (1)
  - CONDITION AGGRAVATED [None]
